FAERS Safety Report 25972259 (Version 2)
Quarter: 2025Q4

REPORT INFORMATION
  Report Type: Spontaneous
  Country: US (occurrence: US)
  Receive Date: 20251029
  Receipt Date: 20251211
  Transmission Date: 20260118
  Serious: No
  Sender: TOLMAR
  Company Number: US-Tolmar-TLM-2025-07851

PATIENT

DRUGS (3)
  1. ELIGARD [Suspect]
     Active Substance: LEUPROLIDE ACETATE
     Indication: Prostate cancer
     Dosage: SN 8424532056065, GTIN 00362935227106, ?LOT: 15282CUS, EXP: 10-2026?SYRINGE A: LOT: 15282AUS, EXP: 1
  2. ELIGARD [Suspect]
     Active Substance: LEUPROLIDE ACETATE
     Dosage: REPLACEMENT DOSE GIVEN
  3. DEVICE [Suspect]
     Active Substance: DEVICE
     Indication: Prostate cancer
     Dosage: SN 8424532056065, GTIN 00362935227106, ?LOT: 15282CUS, EXP: 10-2026?SYRINGE A: LOT: 15282AUS, EXP: 1

REACTIONS (4)
  - Intercepted product preparation error [Unknown]
  - Wrong technique in product usage process [Unknown]
  - Device leakage [Unknown]
  - Product quality issue [Unknown]
